FAERS Safety Report 23920554 (Version 1)
Quarter: 2024Q2

REPORT INFORMATION
  Report Type: Spontaneous
  Country: BE (occurrence: BE)
  Receive Date: 20240530
  Receipt Date: 20240530
  Transmission Date: 20240716
  Serious: Yes (Other)
  Sender: FDA-Public Use
  Company Number: BE-MYLANLABS-2024M1049023

PATIENT
  Age: 29 Year
  Sex: Female

DRUGS (8)
  1. SUFENTANIL [Suspect]
     Active Substance: SUFENTANIL
     Indication: Epidural analgesia
     Dosage: UNK; A FIRST BOLUS OF 10 ML OF ROPIVACAINE 0.125% + SUFENTANIL 0.25 UG/ML
     Route: 008
  2. SUFENTANIL [Suspect]
     Active Substance: SUFENTANIL
     Dosage: 10 MILLILITER, QH; A FIRST BOLUS OF 10 ML OF ROPIVACAINE 0.125% + SUFENTANIL 0.25 MCG/ML.....
     Route: 008
  3. SUFENTANIL [Suspect]
     Active Substance: SUFENTANIL
     Dosage: UNK; ROPIVACAINE 0.1% + SUFENTANIL 0.5 MCG/ML, BOLUS = 10 ML
     Route: 008
  4. EPINEPHRINE [Suspect]
     Active Substance: EPINEPHRINE
     Indication: Epidural test dose
     Dosage: UNK; 1/200000
     Route: 008
  5. ROPIVACAINE [Suspect]
     Active Substance: ROPIVACAINE
     Indication: Epidural analgesia
     Dosage: 10 MILLILITER; A FIRST BOLUS OF 10 ML OF ROPIVACAINE...
     Route: 008
  6. ROPIVACAINE [Suspect]
     Active Substance: ROPIVACAINE
     Dosage: 10 MILLILITER, QH; A FIRST BOLUS OF 10 ML OF ROPIVACAINE 0.125% + SUFENTANIL 0.25 MCG/ML...
     Route: 008
  7. ROPIVACAINE [Suspect]
     Active Substance: ROPIVACAINE
     Indication: Epidural analgesia
     Dosage: 10 MILLILITER; ROPIVACAINE 0.1% + SUFENTANIL 0.5 MCG/ML, BOLUS = 10 ML
     Route: 008
  8. LIDOCAINE [Suspect]
     Active Substance: LIDOCAINE
     Indication: Epidural test dose
     Dosage: 4 MILLILITER
     Route: 008

REACTIONS (2)
  - Horner^s syndrome [Recovered/Resolved]
  - Maternal exposure during delivery [Unknown]
